FAERS Safety Report 21069840 (Version 2)
Quarter: 2024Q3

REPORT INFORMATION
  Report Type: Spontaneous
  Country: US (occurrence: US)
  Receive Date: 20220712
  Receipt Date: 20240722
  Transmission Date: 20241016
  Serious: No
  Sender: ASTELLAS
  Company Number: US-ASTELLAS-2021US033934

PATIENT
  Age: 82 Year
  Sex: Female

DRUGS (1)
  1. MYRBETRIQ [Suspect]
     Active Substance: MIRABEGRON
     Indication: Product used for unknown indication
     Dosage: 25 MG, ONCE DAILY (SINCE ABOUT 60 DAYS TO DATE OR 2-3  MONTHS AGO)
     Route: 048

REACTIONS (1)
  - Therapeutic product effect incomplete [Unknown]
